FAERS Safety Report 4786937-2 (Version None)
Quarter: 2005Q3

REPORT INFORMATION
  Report Type: 
  Country: None (occurrence: None)
  Receive Date: 20050930
  Receipt Date: 20050921
  Transmission Date: 20060218
  Serious: Yes (Death)
  Sender: FDA-Public Use
  Company Number: HQWYE614023SEP05

PATIENT
  Age: 30 Year
  Sex: 0

DRUGS (2)
  1. ADVIL COLD AND SINUS [Suspect]
     Dosage: UNKNOWN, ORAL
     Route: 048
  2. ACETAMINOPHEN [Suspect]
     Dosage: UNKNOWN, ORAL
     Route: 048

REACTIONS (3)
  - COMPLETED SUICIDE [None]
  - INTENTIONAL MISUSE [None]
  - OVERDOSE [None]
